FAERS Safety Report 20691364 (Version 1)
Quarter: 2022Q2

REPORT INFORMATION
  Report Type: Spontaneous
  Country: US (occurrence: None)
  Receive Date: 20220406
  Receipt Date: 20220406
  Transmission Date: 20220720
  Serious: No
  Sender: FDA-Public Use
  Company Number: None

PATIENT
  Age: 66 Year
  Sex: Female
  Weight: 191.6 kg

DRUGS (9)
  1. BRAFTOVI [Suspect]
     Active Substance: ENCORAFENIB
     Indication: Metastasis
     Dosage: 450 MG ONCE DAILY ORAL?
     Route: 048
     Dates: start: 20211015, end: 20220406
  2. MEKTOVI [Suspect]
     Active Substance: BINIMETINIB
     Indication: Metastases to bone
     Dosage: 45MG TWICE  DAILY ORAL?
     Route: 048
     Dates: start: 20211015, end: 20220406
  3. CALCIUM\CHOLECALCIFEROL [Concomitant]
     Active Substance: CALCIUM\CHOLECALCIFEROL
  4. ELIQUIS [Concomitant]
     Active Substance: APIXABAN
  5. HEPARIN [Concomitant]
     Active Substance: HEPARIN SODIUM
  6. IBUPROFEN [Concomitant]
     Active Substance: IBUPROFEN
  7. TRAMADOL [Concomitant]
     Active Substance: TRAMADOL
  8. TYLENOL [Concomitant]
     Active Substance: ACETAMINOPHEN
  9. ZOFRAN [Concomitant]
     Active Substance: ONDANSETRON HYDROCHLORIDE

REACTIONS (2)
  - Drug ineffective [None]
  - Therapy cessation [None]
